FAERS Safety Report 26152157 (Version 1)
Quarter: 2025Q4

REPORT INFORMATION
  Report Type: Spontaneous
  Country: US (occurrence: US)
  Receive Date: 20251214
  Receipt Date: 20251214
  Transmission Date: 20260117
  Serious: No
  Sender: DAIICHI
  Company Number: US-DAIICHI SANKYO, INC.-DS-2025-181416-USAA

PATIENT
  Sex: Female

DRUGS (1)
  1. VANFLYTA [Suspect]
     Active Substance: QUIZARTINIB DIHYDROCHLORIDE
     Indication: Leukaemia
     Dosage: 35.4 MG, QD (ON DAYS 8-21 OF A 28 DAY CYCLE)
     Route: 048
     Dates: start: 202511

REACTIONS (1)
  - Full blood count abnormal [Not Recovered/Not Resolved]
